FAERS Safety Report 7068457 (Version 2)
Quarter: 2014Q3

REPORT INFORMATION
  Report Type: Spontaneous
  Country: US (occurrence: None)
  Receive Date: 20090724
  Receipt Date: 20140806
  Transmission Date: 20150326
  Serious: Yes (Hospitalization, Other)
  Sender: FDA-Public Use
  Company Number: 2009S1005707

PATIENT
  Age: 72 Year
  Sex: Male

DRUGS (2)
  1. COZAAR [Concomitant]
     Active Substance: LOSARTAN POTASSIUM
  2. PHOSPHO-SODA [Suspect]
     Active Substance: SODIUM PHOSPHATE, DIBASIC\SODIUM PHOSPHATE, MONOBASIC
     Indication: COLONOSCOPY
     Dates: start: 2008, end: 2008

REACTIONS (24)
  - Dizziness [None]
  - Dehydration [None]
  - Urinary tract infection fungal [None]
  - Cholelithiasis [None]
  - Lobar pneumonia [None]
  - Sepsis [None]
  - Diverticulum [None]
  - Pleural effusion [None]
  - Intestinal obstruction [None]
  - Fluid overload [None]
  - Nephrogenic anaemia [None]
  - Bladder neoplasm [None]
  - Renal failure [None]
  - Enterococcus test positive [None]
  - Confusional state [None]
  - Intervertebral discitis [None]
  - Obstructive uropathy [None]
  - Ascites [None]
  - Pollakiuria [None]
  - Nocturia [None]
  - Weight decreased [None]
  - Renal tubular necrosis [None]
  - Blood culture positive [None]
  - Inguinal hernia [None]

NARRATIVE: CASE EVENT DATE: 200801
